FAERS Safety Report 8116943-1 (Version None)
Quarter: 2012Q1

REPORT INFORMATION
  Report Type: 
  Country: None (occurrence: None)
  Receive Date: 20120206
  Receipt Date: 20120203
  Transmission Date: 20120608
  Serious: No
  Sender: FDA-Public Use
  Company Number: US-PFIZER INC-2012030849

PATIENT
  Sex: Male

DRUGS (4)
  1. XANAX [Suspect]
     Indication: ANXIETY
     Dosage: 0.5 MG, 3X/DAY
     Route: 048
  2. XANAX [Suspect]
     Dosage: UNK
     Route: 048
  3. ALPRAZOLAM [Suspect]
     Dosage: 0.5 MG, 4X/DAY
  4. ALPRAZOLAM [Suspect]
     Indication: ANXIETY
     Dosage: 0.5 MG, 3X/DAY

REACTIONS (5)
  - MALAISE [None]
  - DRUG INEFFECTIVE [None]
  - NERVOUSNESS [None]
  - FEELING JITTERY [None]
  - TREMOR [None]
